FAERS Safety Report 4639430-1 (Version None)
Quarter: 2005Q2

REPORT INFORMATION
  Report Type: 
  Country: None (occurrence: None)
  Receive Date: 20050418
  Receipt Date: 20050404
  Transmission Date: 20051028
  Serious: Yes (Hospitalization)
  Sender: FDA-Public Use
  Company Number: 213087

PATIENT
  Age: 68 Year
  Sex: Female

DRUGS (8)
  1. AVASTIN [Suspect]
     Indication: COLORECTAL CANCER METASTATIC
     Dosage: 5 MG/KG, Q2W, INTRAVENOUS
     Route: 042
     Dates: start: 20040610
  2. OXALIPLATIN (OXALIPLATIN) [Concomitant]
  3. FLUOROURACIL [Concomitant]
  4. ROCEPHIN [Concomitant]
  5. COMPAZINE [Concomitant]
  6. IMODIUM [Concomitant]
  7. ATIVAN [Concomitant]
  8. NEXIUM [Concomitant]

REACTIONS (17)
  - BLOOD GLUCOSE INCREASED [None]
  - COGNITIVE DISORDER [None]
  - CSF PROTEIN ABNORMAL [None]
  - FACE AND MOUTH X-RAY ABNORMAL [None]
  - GLUCOSE URINE PRESENT [None]
  - GRAND MAL CONVULSION [None]
  - LUNG INFILTRATION [None]
  - MENTAL STATUS CHANGES [None]
  - NERVOUS SYSTEM DISORDER [None]
  - PCO2 INCREASED [None]
  - PNEUMONIA ASPIRATION [None]
  - PROTEINURIA [None]
  - PULMONARY OEDEMA [None]
  - SUBCLAVIAN VEIN THROMBOSIS [None]
  - UNRESPONSIVE TO VERBAL STIMULI [None]
  - URINE KETONE BODY PRESENT [None]
  - VITAMIN B12 ABNORMAL [None]
